FAERS Safety Report 6595122-3 (Version None)
Quarter: 2010Q1

REPORT INFORMATION
  Report Type: 
  Country: None (occurrence: None)
  Receive Date: 20100212
  Receipt Date: 20100203
  Transmission Date: 20100710
  Serious: Yes (Hospitalization)
  Sender: FDA-Public Use
  Company Number: 006280

PATIENT
  Sex: Male

DRUGS (2)
  1. KEPPRA [Suspect]
  2. XELODA [Suspect]
     Dosage: (500 MG)

REACTIONS (1)
  - RHABDOMYOLYSIS [None]
